FAERS Safety Report 22153287 (Version 1)
Quarter: 2023Q1

REPORT INFORMATION
  Report Type: Spontaneous
  Country: US (occurrence: US)
  Receive Date: 20230329
  Receipt Date: 20230329
  Transmission Date: 20230418
  Serious: Yes (Hospitalization)
  Sender: FDA-Public Use
  Company Number: US-ABP-000017

PATIENT
  Age: 80 Year
  Sex: Male

DRUGS (13)
  1. ATOVAQUONE [Suspect]
     Active Substance: ATOVAQUONE
     Indication: Babesiosis
     Route: 065
  2. ATOVAQUONE [Suspect]
     Active Substance: ATOVAQUONE
     Indication: Babesiosis
     Route: 065
  3. AZITHROMYCIN [Suspect]
     Active Substance: AZITHROMYCIN
     Indication: Babesiosis
     Route: 065
  4. AZITHROMYCIN [Suspect]
     Active Substance: AZITHROMYCIN
     Indication: Babesiosis
     Route: 065
  5. CLINDAMYCIN [Suspect]
     Active Substance: CLINDAMYCIN
     Indication: Babesiosis
     Route: 065
  6. CLINDAMYCIN [Suspect]
     Active Substance: CLINDAMYCIN
     Indication: Babesiosis
     Route: 065
  7. QUININE [Suspect]
     Active Substance: QUININE
     Indication: Babesiosis
     Route: 065
  8. ATOVAQUONE\PROGUANIL [Suspect]
     Active Substance: ATOVAQUONE\PROGUANIL
     Indication: Babesiosis
     Route: 065
  9. ATOVAQUONE\PROGUANIL [Suspect]
     Active Substance: ATOVAQUONE\PROGUANIL
     Indication: Babesiosis
     Route: 065
  10. TAFENOQUINE [Suspect]
     Active Substance: TAFENOQUINE
     Indication: Babesiosis
     Route: 065
  11. TAFENOQUINE [Suspect]
     Active Substance: TAFENOQUINE
     Indication: Babesiosis
     Route: 065
  12. RITUXIMAB [Concomitant]
     Active Substance: RITUXIMAB
     Indication: Monoclonal B-cell lymphocytosis
     Route: 065
  13. BENDAMUSTINE [Concomitant]
     Active Substance: BENDAMUSTINE
     Indication: Monoclonal B-cell lymphocytosis
     Route: 065

REACTIONS (13)
  - Dyspnoea exertional [Unknown]
  - Fatigue [Unknown]
  - Decreased appetite [Unknown]
  - Deafness [Unknown]
  - Nausea [Unknown]
  - Thrombocytopenia [Unknown]
  - Abdominal discomfort [Unknown]
  - Anaemia [Unknown]
  - Drug resistance [Unknown]
  - Product use in unapproved indication [Unknown]
  - Vomiting [Unknown]
  - Diarrhoea [Unknown]
  - Disease recurrence [Unknown]
